FAERS Safety Report 8905790 (Version 3)
Quarter: 2013Q1

REPORT INFORMATION
  Report Type: Spontaneous
  Country: CA (occurrence: CA)
  Receive Date: 20121111
  Receipt Date: 20130206
  Transmission Date: 20140127
  Serious: Yes (Hospitalization, Other)
  Sender: FDA-Public Use
  Company Number: PHHY2012CA103407

PATIENT
  Sex: Female

DRUGS (5)
  1. ACLASTA [Suspect]
     Indication: OSTEOPOROSIS
     Dosage: 5MG /100ML, UNK
     Route: 042
     Dates: start: 20091023
  2. ACLASTA [Suspect]
     Dosage: 5MG /100ML, UNK
     Route: 042
     Dates: start: 20100923
  3. ACLASTA [Suspect]
     Dosage: 5MG /100ML, UNK
     Route: 042
     Dates: start: 20111027
  4. ACLASTA [Suspect]
     Dosage: 5MG /100ML, UNK
     Route: 042
     Dates: start: 20121116
  5. ACLASTA [Suspect]
     Dosage: 5MG /100ML, UNK
     Route: 042
     Dates: start: 20130131

REACTIONS (3)
  - Pulmonary embolism [Recovered/Resolved]
  - Chest pain [Unknown]
  - Breast cancer [Unknown]
